FAERS Safety Report 12023684 (Version 1)
Quarter: 2016Q1

REPORT INFORMATION
  Report Type: Report from Study
  Country: US (occurrence: US)
  Receive Date: 20160206
  Receipt Date: 20160206
  Transmission Date: 20160526
  Serious: No
  Sender: FDA-Public Use
  Company Number: US-ABBVIE-15K-163-1478334-00

PATIENT
  Sex: Female

DRUGS (2)
  1. HUMIRA [Suspect]
     Active Substance: ADALIMUMAB
     Route: 065
  2. HUMIRA [Suspect]
     Active Substance: ADALIMUMAB
     Indication: RHEUMATOID ARTHRITIS
     Route: 065
     Dates: start: 20150119

REACTIONS (9)
  - Fatigue [Recovered/Resolved]
  - Chills [Unknown]
  - Viral infection [Recovered/Resolved]
  - Pyrexia [Unknown]
  - Pharyngitis streptococcal [Recovered/Resolved]
  - Arthralgia [Recovering/Resolving]
  - Oropharyngeal pain [Unknown]
  - Pain in extremity [Recovering/Resolving]
  - Pain [Unknown]

NARRATIVE: CASE EVENT DATE: 2015
